FAERS Safety Report 16154555 (Version 1)
Quarter: 2019Q2

REPORT INFORMATION
  Report Type: Spontaneous
  Country: JP (occurrence: JP)
  Receive Date: 20190403
  Receipt Date: 20190403
  Transmission Date: 20190711
  Serious: Yes (Death)
  Sender: FDA-Public Use
  Company Number: JP-ELI_LILLY_AND_COMPANY-JP201904001182

PATIENT
  Age: 37 Year
  Sex: Male
  Weight: 70 kg

DRUGS (12)
  1. INVEGA [Suspect]
     Active Substance: PALIPERIDONE
     Indication: SCHIZOPHRENIA
     Dosage: 9 MG, DAILY
     Route: 048
     Dates: start: 20110405, end: 20110418
  2. AKINETON [Suspect]
     Active Substance: BIPERIDEN HYDROCHLORIDE
     Indication: PARKINSON^S DISEASE
     Dosage: DOSAGE FORM: TABLETS
     Route: 048
     Dates: start: 20090106, end: 20110422
  3. DESYREL [Suspect]
     Active Substance: TRAZODONE HYDROCHLORIDE
     Indication: SCHIZOPHRENIA
     Dosage: DOSAGE FORM: TABLET
     Route: 048
     Dates: end: 20110422
  4. ZYPREXA [Suspect]
     Active Substance: OLANZAPINE
     Dosage: 10 MG, DAILY
     Route: 048
     Dates: start: 20110405, end: 20110418
  5. INVEGA [Suspect]
     Active Substance: PALIPERIDONE
     Indication: INSOMNIA
     Dosage: 6 MG, DAILY
     Route: 048
     Dates: start: 20110329, end: 20110404
  6. INVEGA [Suspect]
     Active Substance: PALIPERIDONE
     Dosage: 12 MG, DAILY
     Route: 048
     Dates: start: 20110419, end: 20110422
  7. ZYPREXA [Suspect]
     Active Substance: OLANZAPINE
     Dosage: 5 MG, DAILY
     Route: 048
     Dates: start: 20110419, end: 20110422
  8. SERENACE [Suspect]
     Active Substance: HALOPERIDOL
     Indication: SCHIZOPHRENIA
     Route: 048
     Dates: start: 20101026, end: 20110422
  9. RIVOTRIL [Suspect]
     Active Substance: CLONAZEPAM
     Indication: SCHIZOPHRENIA
     Dosage: DOSAGE FORM: TABLET
     Route: 048
     Dates: start: 20100608, end: 20110422
  10. ZYPREXA [Suspect]
     Active Substance: OLANZAPINE
     Indication: SCHIZOPHRENIA
     Dosage: 20 MG, DAILY
     Route: 048
     Dates: end: 20110404
  11. DEPAKENE-R [Suspect]
     Active Substance: VALPROATE SODIUM
     Indication: SCHIZOPHRENIA
     Dosage: DOSAGE FORM: TABLETS
     Route: 048
     Dates: start: 20110222, end: 20110422
  12. ASVERIN (TIPEPIDINE HIBENZATE) [Suspect]
     Active Substance: TIPEPIDINE HIBENZATE
     Indication: COUGH
     Dosage: DOSAGE FORM: TABLET
     Route: 048
     Dates: end: 20110422

REACTIONS (3)
  - Mood altered [Fatal]
  - Salivary hypersecretion [Fatal]
  - Cardiac failure [Fatal]

NARRATIVE: CASE EVENT DATE: 20110422
